FAERS Safety Report 5636330-5 (Version None)
Quarter: 2008Q1

REPORT INFORMATION
  Report Type: 
  Country: None (occurrence: None)
  Receive Date: 20080225
  Receipt Date: 20080220
  Transmission Date: 20080703
  Serious: Yes (Hospitalization)
  Sender: FDA-Public Use
  Company Number: FR-BRISTOL-MYERS SQUIBB COMPANY-14085161

PATIENT
  Age: 78 Year
  Sex: Male

DRUGS (10)
  1. IRBESARTAN [Suspect]
     Indication: HYPERTENSION
     Route: 048
     Dates: start: 20070620, end: 20070820
  2. TAREG [Concomitant]
  3. FUROSEMIDE [Concomitant]
  4. CARDENSIEL [Concomitant]
  5. FENOFIBRATE [Concomitant]
  6. DIFFU-K [Concomitant]
  7. PREVISCAN [Concomitant]
  8. TRIMEBUTINE [Concomitant]
  9. DEXTROPROPOXYPHENE [Concomitant]
  10. ACETAMINOPHEN [Concomitant]

REACTIONS (2)
  - RASH VESICULAR [None]
  - SKIN REACTION [None]
